FAERS Safety Report 9387685 (Version 1)
Quarter: 2013Q3

REPORT INFORMATION
  Report Type: Spontaneous
  Country: FI (occurrence: FI)
  Receive Date: 20130708
  Receipt Date: 20130708
  Transmission Date: 20140515
  Serious: Yes (Hospitalization)
  Sender: FDA-Public Use
  Company Number: FI-B.I. PHARMACEUTICALS,INC./RIDGEFIELD-2013-SW-00346SF

PATIENT
  Age: 66 Year
  Sex: Male

DRUGS (9)
  1. MOBIC [Suspect]
     Indication: PAIN
     Dosage: 15 MG
     Route: 048
     Dates: start: 20130613, end: 20130617
  2. PANADOL FORTE [Concomitant]
     Indication: PAIN
     Dosage: 3 G
     Route: 048
     Dates: start: 20130613
  3. TARGINIQ [Concomitant]
     Indication: PAIN
     Dosage: STRENGTH OF INGREDIENTS ARE 10 MG/5 MG; DAILY DOSE: 20MG/10MG
     Route: 048
     Dates: start: 20130613, end: 20130619
  4. KLEXANE [Concomitant]
     Indication: THROMBOSIS PROPHYLAXIS
     Dosage: 40 MG
     Route: 058
     Dates: start: 20130613, end: 20130627
  5. SERETIDE EVOHALER [Concomitant]
     Indication: ASTHMA
     Dosage: STRENGTH 25/250 MCG, DAILY DOSE: 50/500 MCG
     Route: 055
  6. OXYNORM [Concomitant]
     Indication: PAIN
     Dosage: 1-2 TABLETS WHEN NEEDED
     Route: 048
     Dates: start: 20130613, end: 20130617
  7. ATARAX [Concomitant]
     Indication: PRURITUS
     Dosage: 1 TABLET 25 MG FILM COATED TABLETS WHEN NEEDED
     Dates: start: 20130614, end: 20130615
  8. IBUSAL [Concomitant]
     Dosage: 600 MG WHEN NEEDED
  9. VENTOLINE EVOHALER [Concomitant]

REACTIONS (7)
  - Diarrhoea [Recovered/Resolved]
  - Asthenia [Recovered/Resolved]
  - Gastric dilatation [Recovered/Resolved]
  - Gastrointestinal sounds abnormal [Recovered/Resolved]
  - Dizziness [Recovered/Resolved]
  - Impaired self-care [Recovered/Resolved]
  - Flatulence [Recovered/Resolved]
